FAERS Safety Report 7496610-8 (Version None)
Quarter: 2011Q2

REPORT INFORMATION
  Report Type: 
  Country: None (occurrence: None)
  Receive Date: 20110523
  Receipt Date: 20110518
  Transmission Date: 20111010
  Serious: Yes (Death)
  Sender: FDA-Public Use
  Company Number: LU-ASTRAZENECA-2011SE29783

PATIENT
  Sex: Female

DRUGS (3)
  1. ANTIDEPRESSIVA [Concomitant]
  2. SEROQUEL [Suspect]
     Dosage: 10 TABLETS OF 100 MG, 130 TABLETS OF 200 MG
     Route: 048
     Dates: start: 20110501, end: 20110501
  3. DOMINAL [Suspect]
     Dosage: 30 TABLETS OF 200 MG

REACTIONS (1)
  - COMPLETED SUICIDE [None]
